FAERS Safety Report 23243728 (Version 1)
Quarter: 2023Q4

REPORT INFORMATION
  Report Type: Spontaneous
  Country: US (occurrence: US)
  Receive Date: 20231130
  Receipt Date: 20231130
  Transmission Date: 20240109
  Serious: Yes (Other)
  Sender: FDA-Public Use
  Company Number: US-BRISTOL-MYERS SQUIBB COMPANY-2023-169763

PATIENT
  Age: 53 Year
  Sex: Male

DRUGS (3)
  1. TRIAMCINOLONE ACETONIDE [Suspect]
     Active Substance: TRIAMCINOLONE ACETONIDE
     Indication: Osteoarthritis
     Dates: start: 2018
  2. DEXAMETHASONE [Suspect]
     Active Substance: DEXAMETHASONE
     Indication: Osteoarthritis
     Dates: start: 2018
  3. PREDNISONE [Suspect]
     Active Substance: PREDNISONE
     Indication: Osteoarthritis

REACTIONS (2)
  - Cushing^s syndrome [Unknown]
  - Adrenal insufficiency [Unknown]
